FAERS Safety Report 10764878 (Version 1)
Quarter: 2015Q1

REPORT INFORMATION
  Report Type: Spontaneous
  Country: US (occurrence: None)
  Receive Date: 20150204
  Receipt Date: 20150204
  Transmission Date: 20150721
  Serious: No
  Sender: FDA-Public Use
  Company Number: None

PATIENT

DRUGS (1)
  1. ACETYLCYSTEINE. [Suspect]
     Active Substance: ACETYLCYSTEINE
     Dosage: DOSAGE FORM: SOLUTION, STRENGTH: 20%, TYPE: VIAL, SIZE: 30 ML

REACTIONS (2)
  - Product label confusion [None]
  - Intercepted drug dispensing error [None]
